FAERS Safety Report 11722723 (Version 2)
Quarter: 2015Q4

REPORT INFORMATION
  Report Type: Spontaneous
  Country: US (occurrence: US)
  Receive Date: 20151111
  Receipt Date: 20151201
  Transmission Date: 20160304
  Serious: Yes (Hospitalization)
  Sender: FDA-Public Use
  Company Number: US-BEH-2015055499

PATIENT
  Sex: Female
  Weight: 29 kg

DRUGS (8)
  1. CHILD MULTIVITAMINS [Concomitant]
  2. LMX [Concomitant]
     Active Substance: LIDOCAINE
  3. ALBUTEROL. [Concomitant]
     Active Substance: ALBUTEROL
  4. LIDOCAINE/PRILOCAINE [Concomitant]
  5. HIZENTRA [Suspect]
     Active Substance: HUMAN IMMUNOGLOBULIN G
     Indication: COMBINED IMMUNODEFICIENCY
     Dosage: 4 GM 20 ML VIALS
     Route: 058
  6. EPIPEN [Concomitant]
     Active Substance: EPINEPHRINE
  7. DIPHENHYDRAMINE. [Concomitant]
     Active Substance: DIPHENHYDRAMINE
  8. NEILMED SINUS RINSE [Concomitant]
     Active Substance: SODIUM BICARBONATE\SODIUM CHLORIDE

REACTIONS (1)
  - Ear infection [Unknown]
